FAERS Safety Report 23545973 (Version 1)
Quarter: 2024Q1

REPORT INFORMATION
  Report Type: Spontaneous
  Country: US (occurrence: None)
  Receive Date: 20240219
  Receipt Date: 20240219
  Transmission Date: 20240410
  Serious: No
  Sender: FDA-Public Use
  Company Number: None

PATIENT
  Sex: Female

DRUGS (1)
  1. XEMBIFY [Suspect]
     Active Substance: HUMAN IMMUNOGLOBULIN G
     Indication: Immunodeficiency common variable
     Dosage: 10GM WEEKLY IV ?
     Route: 042
     Dates: start: 202302

REACTIONS (5)
  - Fall [None]
  - Contusion [None]
  - Therapy interrupted [None]
  - Product container issue [None]
  - Product closure issue [None]
